FAERS Safety Report 8450495-1 (Version None)
Quarter: 2012Q2

REPORT INFORMATION
  Report Type: 
  Country: None (occurrence: None)
  Receive Date: 20120614
  Receipt Date: 20120614
  Transmission Date: 20120825
  Serious: No
  Sender: FDA-Public Use
  Company Number: None

PATIENT
  Age: 57 Year
  Sex: Male
  Weight: 105.0984 kg

DRUGS (1)
  1. SPRYCEL [Suspect]
     Indication: MALIGNANT SOFT TISSUE NEOPLASM
     Dosage: 70MG BID PO
     Route: 048
     Dates: start: 20120302

REACTIONS (2)
  - FLUID RETENTION [None]
  - ILEUS [None]
